FAERS Safety Report 7463708-X (Version None)
Quarter: 2011Q2

REPORT INFORMATION
  Report Type: 
  Country: None (occurrence: None)
  Receive Date: 20110506
  Receipt Date: 20110427
  Transmission Date: 20111010
  Serious: Yes (Hospitalization)
  Sender: FDA-Public Use
  Company Number: US-SANOFI-AVENTIS-2011SA024329

PATIENT
  Age: 54 Year
  Sex: Female
  Weight: 73.48 kg

DRUGS (7)
  1. ESOMEPRAZOLE [Concomitant]
     Dosage: 1 CAP
     Route: 048
     Dates: start: 20110416
  2. ONDANSETRON [Concomitant]
     Dosage: 8 HOURS
  3. LANTUS [Suspect]
     Dosage: DOSE:4 UNIT(S)
     Route: 058
  4. LANTUS [Suspect]
     Indication: BLOOD GLUCOSE INCREASED
     Dosage: DOSE:4 UNIT(S)
     Route: 058
  5. AMLODIPINE BESYLATE [Concomitant]
     Dosage: 1 A DAY
  6. METOCLOPRAMIDE [Concomitant]
  7. SERTRALINE [Concomitant]
     Dosage: 1 A DAY

REACTIONS (4)
  - NAUSEA [None]
  - DYSPEPSIA [None]
  - VOMITING [None]
  - DIABETES MELLITUS [None]
